FAERS Safety Report 18243007 (Version 1)
Quarter: 2020Q3

REPORT INFORMATION
  Report Type: Spontaneous
  Country: US (occurrence: US)
  Receive Date: 20200908
  Receipt Date: 20200908
  Transmission Date: 20201103
  Serious: No
  Sender: FDA-Public Use
  Company Number: US-PFIZER INC-2020344916

PATIENT
  Age: 69 Year
  Sex: Female

DRUGS (1)
  1. XELJANZ [Suspect]
     Active Substance: TOFACITINIB CITRATE
     Indication: RHEUMATOID ARTHRITIS
     Dosage: 5 MG, 1X/DAY
     Route: 048
     Dates: start: 20200727, end: 20200829

REACTIONS (7)
  - Myalgia [Unknown]
  - Abdominal discomfort [Unknown]
  - Muscle discomfort [Unknown]
  - Eye pain [Unknown]
  - Pain in extremity [Recovering/Resolving]
  - Eructation [Unknown]
  - Eye disorder [Unknown]

NARRATIVE: CASE EVENT DATE: 20200727
